FAERS Safety Report 6915315-2 (Version None)
Quarter: 2010Q3

REPORT INFORMATION
  Report Type: 
  Country: None (occurrence: None)
  Receive Date: 20100806
  Receipt Date: 20100806
  Transmission Date: 20110219
  Serious: Yes (Other)
  Sender: FDA-Public Use
  Company Number: None

PATIENT
  Sex: Female
  Weight: 74.8435 kg

DRUGS (1)
  1. FEMARA [Suspect]
     Indication: BREAST CANCER STAGE III
     Dosage: 2.5MG DAILY PO
     Route: 048
     Dates: start: 20050315, end: 20100401

REACTIONS (4)
  - CHEST PAIN [None]
  - FATIGUE [None]
  - INCREASED TENDENCY TO BRUISE [None]
  - SKIN ATROPHY [None]
